FAERS Safety Report 6663475-3 (Version None)
Quarter: 2010Q1

REPORT INFORMATION
  Report Type: 
  Country: None (occurrence: None)
  Receive Date: 20100330
  Receipt Date: 20100330
  Transmission Date: 20100710
  Serious: Yes (Other)
  Sender: FDA-Public Use
  Company Number: None

PATIENT
  Age: 18 Year
  Sex: Female

DRUGS (5)
  1. SEROQUEL [Suspect]
     Indication: MAJOR DEPRESSION
     Dosage: 600 MG AT BEDTIME PO
     Route: 048
     Dates: start: 20091229, end: 20091229
  2. CITALOPRAM HYDROBROMIDE [Concomitant]
  3. ALBUTEROL [Concomitant]
  4. NICOTINE [Concomitant]
  5. IBUPROFEN [Concomitant]

REACTIONS (5)
  - BLOOD PRESSURE DECREASED [None]
  - BLOOD TRIGLYCERIDES INCREASED [None]
  - BODY TEMPERATURE DECREASED [None]
  - ELECTROCARDIOGRAM QT PROLONGED [None]
  - PROTEIN TOTAL DECREASED [None]
